FAERS Safety Report 16118691 (Version 2)
Quarter: 2019Q2

REPORT INFORMATION
  Report Type: Report from Study
  Country: JP (occurrence: JP)
  Receive Date: 20190326
  Receipt Date: 20190401
  Transmission Date: 20190711
  Serious: Yes (Other)
  Sender: FDA-Public Use
  Company Number: JP-PFIZER INC-2019126754

PATIENT

DRUGS (3)
  1. METHOTREXATE. [Suspect]
     Active Substance: METHOTREXATE
     Indication: RHEUMATOID ARTHRITIS
     Dosage: UNK, WEEKLY (UPTO 16 MG)
  2. REMICADE [Suspect]
     Active Substance: INFLIXIMAB
     Dosage: BASED ON THE PATIENT^S CLINICAL RESPONSE (THE ADJUSTED GROUP)
  3. REMICADE [Suspect]
     Active Substance: INFLIXIMAB
     Indication: RHEUMATOID ARTHRITIS
     Dosage: 3 MG/KG, UNK (AT WEEKS 0, 2, AND 6 WEEKS AND INFLIXIMAB AT DOSES 3, 6, OR 10 MG/KG WAS ADMINISTERED)

REACTIONS (1)
  - Breast cancer [Unknown]
